FAERS Safety Report 9745479 (Version 1)
Quarter: 2013Q4

REPORT INFORMATION
  Report Type: Spontaneous
  Country: US (occurrence: None)
  Receive Date: 20131205
  Receipt Date: 20131205
  Transmission Date: 20140711
  Serious: Yes (Hospitalization)
  Sender: FDA-Public Use
  Company Number: None

PATIENT
  Age: 23 Year
  Sex: Male
  Weight: 96.9 kg

DRUGS (8)
  1. PEGASPARGASE [Suspect]
     Indication: ACUTE LYMPHOCYTIC LEUKAEMIA
     Dosage: 2500 IU/M2/DOSE WEEKLY X 3 DOSES IM
     Route: 030
     Dates: start: 20130924
  2. VINCRISTINE [Concomitant]
  3. DOXORUBICIN [Concomitant]
  4. PREDNISONE [Concomitant]
  5. BORTEZOMIB [Concomitant]
  6. METHOTREXATE [Concomitant]
  7. ONDANSETRON [Concomitant]
  8. MICAFUNGIN [Concomitant]

REACTIONS (5)
  - Alanine aminotransferase increased [None]
  - Aspartate aminotransferase increased [None]
  - Blood bilirubin increased [None]
  - Gamma-glutamyltransferase increased [None]
  - Bilirubin conjugated increased [None]
